FAERS Safety Report 9081044 (Version 1)
Quarter: 2013Q1

REPORT INFORMATION
  Report Type: Report from Study
  Country: US (occurrence: US)
  Receive Date: 20130130
  Receipt Date: 20130130
  Transmission Date: 20140127
  Serious: No
  Sender: FDA-Public Use
  Company Number: US-ABBOTT-12P-163-0962213-00

PATIENT
  Age: 26 Year
  Sex: Female

DRUGS (6)
  1. HUMIRA 40 MG/0.8 ML PEN [Suspect]
     Indication: CROHN^S DISEASE
     Route: 058
     Dates: start: 20120715, end: 20120715
  2. HUMIRA 40 MG/0.8 ML PEN [Suspect]
     Route: 058
     Dates: start: 20120729, end: 20120729
  3. HUMIRA 40 MG/0.8 ML PEN [Suspect]
     Route: 058
  4. PREDNISONE [Concomitant]
     Indication: CROHN^S DISEASE
     Dosage: 15MG DAILY
  5. MOBIC [Concomitant]
     Indication: CROHN^S DISEASE
     Route: 048
  6. MOBIC [Concomitant]
     Indication: ARTHRITIS

REACTIONS (5)
  - Injection site bruising [Not Recovered/Not Resolved]
  - Injection site haemorrhage [Not Recovered/Not Resolved]
  - Injection site pain [Not Recovered/Not Resolved]
  - Contusion [Not Recovered/Not Resolved]
  - Injection site vesicles [Not Recovered/Not Resolved]
